FAERS Safety Report 15736864 (Version 1)
Quarter: 2018Q4

REPORT INFORMATION
  Report Type: Spontaneous
  Country: IN (occurrence: IN)
  Receive Date: 20181218
  Receipt Date: 20181218
  Transmission Date: 20190205
  Serious: Yes (Death)
  Sender: FDA-Public Use
  Company Number: IN-PFIZER INC-2018517548

PATIENT
  Age: 68 Year
  Sex: Female

DRUGS (5)
  1. MEROPENEM. [Suspect]
     Active Substance: MEROPENEM
     Indication: PSEUDOMONAS INFECTION
  2. COTRIMOXAZOLE [Suspect]
     Active Substance: SULFAMETHOXAZOLE\TRIMETHOPRIM
     Indication: BACTERIAL INFECTION
     Dosage: UNK
  3. MEROPENEM. [Suspect]
     Active Substance: MEROPENEM
     Indication: BACTERIAL INFECTION
     Dosage: UNK
  4. POLYMYXIN [Suspect]
     Active Substance: POLYMYXIN
     Indication: PSEUDOMONAS INFECTION
  5. POLYMYXIN [Suspect]
     Active Substance: POLYMYXIN
     Indication: BACTERIAL INFECTION
     Dosage: UNK

REACTIONS (2)
  - Drug ineffective [Fatal]
  - Acute kidney injury [Fatal]
